FAERS Safety Report 10518222 (Version 1)
Quarter: 2014Q4

REPORT INFORMATION
  Report Type: Spontaneous
  Country: US (occurrence: None)
  Receive Date: 20141014
  Receipt Date: 20141014
  Transmission Date: 20150528
  Serious: Yes (Death, Hospitalization)
  Sender: FDA-Public Use
  Company Number: None

PATIENT
  Age: 65 Year
  Sex: Male
  Weight: 62 kg

DRUGS (1)
  1. IBRUTINIB [Suspect]
     Active Substance: IBRUTINIB
     Indication: WALDENSTROM^S MACROGLOBULINAEMIA
     Dosage: 4 PILLS DAILY QD ORAL
     Route: 048
     Dates: start: 20140921, end: 20141008

REACTIONS (14)
  - Diarrhoea [None]
  - Epistaxis [None]
  - Blood creatinine increased [None]
  - Unresponsive to stimuli [None]
  - Vomiting [None]
  - Respiratory rate increased [None]
  - Blood pressure systolic increased [None]
  - Blood urea increased [None]
  - Asthenia [None]
  - Dyspnoea [None]
  - Deafness [None]
  - Haemoglobin decreased [None]
  - Cardio-respiratory arrest [None]
  - Nausea [None]

NARRATIVE: CASE EVENT DATE: 20141010
